FAERS Safety Report 6696027-X (Version None)
Quarter: 2010Q2

REPORT INFORMATION
  Report Type: 
  Country: None (occurrence: None)
  Receive Date: 20100422
  Receipt Date: 20100407
  Transmission Date: 20101027
  Serious: Yes (Life-Threatening)
  Sender: FDA-Public Use
  Company Number: AUR-APL-2010-01112

PATIENT
  Age: 78 Year
  Sex: Male

DRUGS (13)
  1. METFORMIN HCL [Suspect]
     Indication: DIABETES MELLITUS
     Dosage: TID ORAL
     Route: 048
     Dates: start: 20090101, end: 20100113
  2. CETIRIZINE HCL [Suspect]
     Indication: URTICARIA
     Dosage: BID ORAL
     Route: 048
     Dates: start: 20091204, end: 20091207
  3. ZARATOR FILM-COATED TABLET [Suspect]
     Indication: ACUTE MYOCARDIAL INFARCTION
     Dosage: 80MG DAILY ORAL
     Route: 048
     Dates: start: 20091127, end: 20091204
  4. CAPTOPRIL [Suspect]
     Indication: ACUTE MYOCARDIAL INFARCTION
     Dosage: BID ORAL
     Route: 048
     Dates: start: 20091127, end: 20091204
  5. RANITIDINE [Suspect]
     Indication: ULCER
     Dosage: 300MG DAILY ORAL
     Route: 048
     Dates: start: 20091127, end: 20100112
  6. ASPIRIN [Suspect]
     Indication: ACUTE MYOCARDIAL INFARCTION
     Dosage: 100MG DAILY ORAL
     Route: 048
     Dates: start: 20091126
  7. COZAAR [Suspect]
     Indication: ACUTE MYOCARDIAL INFARCTION
     Dosage: BID
     Dates: start: 20091204, end: 20091205
  8. COZAAR [Suspect]
     Indication: ACUTE MYOCARDIAL INFARCTION
     Dosage: BID
     Dates: start: 20091210, end: 20100112
  9. EMCONCOR COR [Suspect]
     Indication: ACUTE MYOCARDIAL INFARCTION
     Dosage: 2.5MG DAILY ORAL
     Route: 048
     Dates: start: 20091210, end: 20100112
  10. EZETROL [Suspect]
     Indication: ACUTE MYOCARDIAL INFARCTION
     Dosage: 20MG DAILY ORAL
     Route: 048
     Dates: start: 20091216, end: 20100112
  11. GLIMEPIRIDE [Suspect]
     Indication: DIABETES MELLITUS
     Dosage: 1MG DAILY ORAL
     Route: 048
     Dates: start: 20091110, end: 20100112
  12. PLAVIX [Suspect]
     Indication: ACUTE MYOCARDIAL INFARCTION
     Dosage: 75MG DAILY ORAL
     Route: 048
     Dates: start: 20091126, end: 20100112
  13. RONAME [Suspect]
     Indication: ACUTE MYOCARDIAL INFARCTION
     Dosage: 1MG DAILY ORAL
     Route: 048
     Dates: start: 20090101, end: 20091214

REACTIONS (1)
  - NEUTROPENIA [None]
